FAERS Safety Report 5334220-9 (Version None)
Quarter: 2007Q2

REPORT INFORMATION
  Report Type: 
  Country: None (occurrence: None)
  Receive Date: 20070525
  Receipt Date: 20060809
  Transmission Date: 20071010
  Serious: No
  Sender: FDA-Public Use
  Company Number: A0610353A

PATIENT
  Age: 57 Year
  Sex: Female

DRUGS (1)
  1. BACTROBAN [Suspect]
     Indication: SKIN INFECTION
     Route: 045
     Dates: start: 20060201

REACTIONS (4)
  - FOREIGN BODY TRAUMA [None]
  - HYPERAESTHESIA [None]
  - NASAL DISCOMFORT [None]
  - PHARMACEUTICAL PRODUCT COMPLAINT [None]
